FAERS Safety Report 7659807-X (Version None)
Quarter: 2011Q3

REPORT INFORMATION
  Report Type: 
  Country: None (occurrence: None)
  Receive Date: 20110805
  Receipt Date: 20110307
  Transmission Date: 20111222
  Serious: No
  Sender: FDA-Public Use
  Company Number: US-ABBOTT-11P-163-0703510-00

PATIENT
  Sex: Female
  Weight: 65.83 kg

DRUGS (3)
  1. DEPAKOTE [Suspect]
     Indication: PETIT MAL EPILEPSY
  2. DIVALPROEX SODIUM EXTENDED RELEASE [Suspect]
     Indication: PETIT MAL EPILEPSY
     Dates: start: 20050412, end: 20100818
  3. DEPAKOTE [Suspect]
     Indication: PETIT MAL EPILEPSY
     Dosage: 1 IN THE AM AND 2 AT BEDTIME
     Dates: start: 20100824

REACTIONS (3)
  - RASH [None]
  - HYPOACUSIS [None]
  - PRURITUS [None]
